FAERS Safety Report 19686719 (Version 1)
Quarter: 2021Q3

REPORT INFORMATION
  Report Type: Spontaneous
  Country: CH (occurrence: CH)
  Receive Date: 20210811
  Receipt Date: 20210811
  Transmission Date: 20211014
  Serious: Yes (Other)
  Sender: FDA-Public Use
  Company Number: CH-BAYER-2021-191603

PATIENT
  Age: 55 Year
  Sex: Female
  Weight: 55 kg

DRUGS (2)
  1. GADOVIST [Suspect]
     Active Substance: GADOBUTROL
     Indication: MAGNETIC RESONANCE IMAGING
     Dosage: 6 MMOL, ONCE
     Route: 040
     Dates: start: 20210408, end: 20210408
  2. MIDAZOLAM. [Concomitant]
     Active Substance: MIDAZOLAM
     Indication: CLAUSTROPHOBIA
     Dosage: 1.5 MG, UNK
     Route: 040
     Dates: start: 20210408, end: 20210408

REACTIONS (8)
  - Vomiting [Unknown]
  - Feeling hot [Unknown]
  - Diarrhoea [Unknown]
  - Pruritus [Unknown]
  - Rash [Unknown]
  - Headache [Unknown]
  - Nausea [Unknown]
  - Hypersensitivity [Unknown]

NARRATIVE: CASE EVENT DATE: 20210408
